FAERS Safety Report 5927893-0 (Version None)
Quarter: 2008Q4

REPORT INFORMATION
  Report Type: 
  Country: None (occurrence: None)
  Receive Date: 20081022
  Receipt Date: 20081022
  Transmission Date: 20090506
  Serious: No
  Sender: FDA-Public Use
  Company Number: None

PATIENT
  Age: 29 Year
  Sex: Female
  Weight: 57.6068 kg

DRUGS (1)
  1. KENALOG [Suspect]
     Indication: DERMATITIS CONTACT

REACTIONS (4)
  - EMOTIONAL DISTRESS [None]
  - FEAR [None]
  - INJECTION SITE PAIN [None]
  - INJECTION SITE REACTION [None]
